FAERS Safety Report 8420419-1 (Version None)
Quarter: 2012Q2

REPORT INFORMATION
  Report Type: 
  Country: None (occurrence: None)
  Receive Date: 20120607
  Receipt Date: 20120530
  Transmission Date: 20120825
  Serious: Yes (Hospitalization, Other)
  Sender: FDA-Public Use
  Company Number: US-ELI_LILLY_AND_COMPANY-US201205000844

PATIENT
  Sex: Female
  Weight: 138.78 kg

DRUGS (18)
  1. BYETTA [Suspect]
     Indication: TYPE 2 DIABETES MELLITUS
     Dosage: 5 UG, BID
     Route: 058
     Dates: start: 20070101
  2. KLOR-CON [Concomitant]
     Indication: MINERAL SUPPLEMENTATION
     Dosage: 10 MEQ, QD
     Route: 048
  3. NEXIUM [Concomitant]
     Indication: GASTROOESOPHAGEAL REFLUX DISEASE
     Dosage: 40 MG, QD
     Route: 048
  4. CALCIUM [Concomitant]
     Dosage: UNK
  5. BENICAR [Concomitant]
     Indication: HYPERTENSION
     Dosage: 20 MG, EACH EVENING
     Route: 048
  6. MELOXICAM [Concomitant]
     Indication: ARTHRITIS
     Dosage: 15 MG, QD
     Route: 048
  7. METOPROLOL [Concomitant]
     Dosage: 75 MG, BID
     Route: 048
  8. VITAMIN TAB [Concomitant]
     Dosage: UNK
  9. BYETTA [Suspect]
     Dosage: 10 UG, BID
     Route: 058
     Dates: end: 20120501
  10. RAMIPRIL [Concomitant]
     Indication: HYPERTENSION
     Dosage: 10 MG, EACH MORNING
     Route: 048
  11. BYDUREON [Suspect]
     Dosage: 2 MG, WEEKLY (1/W)
     Route: 058
     Dates: end: 20120516
  12. GLIMEPIRIDE [Concomitant]
     Indication: TYPE 2 DIABETES MELLITUS
     Dosage: 8 MG, EACH EVENING
     Route: 048
  13. ATORVASTATIN CALCIUM [Concomitant]
     Indication: BLOOD CHOLESTEROL INCREASED
     Dosage: 20 MG, QD
     Route: 048
  14. BYDUREON [Suspect]
     Indication: TYPE 2 DIABETES MELLITUS
     Dosage: 2 MG, WEEKLY (1/W)
     Route: 058
     Dates: start: 20120502
  15. BYDUREON [Suspect]
     Dosage: 2 MG, WEEKLY (1/W)
     Route: 058
  16. HYDROCHLOROTHIAZDE TAB [Concomitant]
     Indication: HYPERTENSION
     Dosage: 25 MG, EACH MORNING
     Route: 048
  17. BUPROPION HCL [Concomitant]
     Indication: DEPRESSION
     Dosage: 300 MG, QD
     Route: 048
  18. GABAPENTIN [Concomitant]
     Indication: DIABETIC NEUROPATHY
     Dosage: 300 MG, BID
     Route: 048

REACTIONS (12)
  - BLOOD GLUCOSE INCREASED [None]
  - CHOLELITHIASIS [None]
  - ABDOMINAL PAIN [None]
  - URINARY TRACT INFECTION [None]
  - GALLBLADDER POLYP [None]
  - PANCREATITIS [None]
  - BACK PAIN [None]
  - GLYCOSYLATED HAEMOGLOBIN INCREASED [None]
  - GALLBLADDER ENLARGEMENT [None]
  - INJECTION SITE HAEMORRHAGE [None]
  - PAIN [None]
  - WEIGHT DECREASED [None]
